FAERS Safety Report 4907873-4 (Version None)
Quarter: 2006Q1

REPORT INFORMATION
  Report Type: 
  Country: None (occurrence: None)
  Receive Date: 20060210
  Receipt Date: 20060206
  Transmission Date: 20060701
  Serious: Yes (Other)
  Sender: FDA-Public Use
  Company Number: BR-BRISTOL-MYERS SQUIBB COMPANY-13273644

PATIENT
  Age: 36 Year
  Sex: Male
  Weight: 77 kg

DRUGS (1)
  1. CORGARD [Suspect]
     Indication: ARRHYTHMIA
     Dates: start: 20060101

REACTIONS (1)
  - DIABETES MELLITUS [None]
